FAERS Safety Report 5454410-4 (Version None)
Quarter: 2007Q3

REPORT INFORMATION
  Report Type: 
  Country: None (occurrence: None)
  Receive Date: 20070917
  Receipt Date: 20060810
  Transmission Date: 20080115
  Serious: No
  Sender: FDA-Public Use
  Company Number: US-ASTRAZENECA-2006UW15960

PATIENT
  Age: 47 Year
  Sex: Female
  Weight: 105.2 kg

DRUGS (7)
  1. SEROQUEL [Suspect]
     Indication: INSOMNIA
     Route: 048
  2. SEROQUEL [Suspect]
     Indication: BIPOLAR DISORDER
     Route: 048
  3. TOPAMAX [Concomitant]
  4. FUROSEMIDE [Concomitant]
  5. PROTONIX [Concomitant]
  6. BUPROPION HCL [Concomitant]
  7. RISPERDAL [Concomitant]

REACTIONS (1)
  - SEXUAL DYSFUNCTION [None]
